FAERS Safety Report 18808856 (Version 1)
Quarter: 2021Q1

REPORT INFORMATION
  Report Type: Spontaneous
  Country: US (occurrence: US)
  Receive Date: 20210129
  Receipt Date: 20210129
  Transmission Date: 20210419
  Serious: Yes (Other)
  Sender: FDA-Public Use
  Company Number: US-PUMA BIOTECHNOLOGY, LTD.-2021US000599

PATIENT

DRUGS (1)
  1. NERLYNX [Suspect]
     Active Substance: NERATINIB
     Indication: BREAST CANCER METASTATIC
     Dosage: 120 MG (3 TABLETS), DAILY
     Route: 048

REACTIONS (5)
  - Diarrhoea [Unknown]
  - Blood sodium decreased [Unknown]
  - Underdose [Unknown]
  - Breast cancer metastatic [Unknown]
  - Off label use [Unknown]
